FAERS Safety Report 9490455 (Version 2)
Quarter: 2013Q3

REPORT INFORMATION
  Report Type: Spontaneous
  Country: CA (occurrence: CA)
  Receive Date: 20130830
  Receipt Date: 20130830
  Transmission Date: 20140515
  Serious: Yes (Life-Threatening, Hospitalization)
  Sender: FDA-Public Use
  Company Number: CA-ALVOGEN-2013AL000468

PATIENT
  Age: 94 Year
  Sex: Female
  Weight: 54 kg

DRUGS (16)
  1. MACROBID [Suspect]
     Indication: PROPHYLAXIS URINARY TRACT INFECTION
     Route: 048
     Dates: start: 20120103, end: 20120905
  2. PLAVIX [Suspect]
     Indication: CEREBROVASCULAR ACCIDENT PROPHYLAXIS
     Route: 048
     Dates: start: 20120904, end: 20120913
  3. SYSTANE LUBRICANT [Concomitant]
     Indication: PRODUCT USED FOR UNKNOWN INDICATION
     Route: 031
  4. ACEBUTOLOL HYDROCHLORIDE [Concomitant]
     Indication: PRODUCT USED FOR UNKNOWN INDICATION
  5. VENLAFAXINE HYDROCHLORIDE [Concomitant]
     Indication: PRODUCT USED FOR UNKNOWN INDICATION
  6. SEROQUEL [Concomitant]
     Indication: PRODUCT USED FOR UNKNOWN INDICATION
  7. ATIVAN [Concomitant]
     Indication: PRODUCT USED FOR UNKNOWN INDICATION
  8. LUMIGAN [Concomitant]
     Indication: PRODUCT USED FOR UNKNOWN INDICATION
  9. XALATAN [Concomitant]
     Indication: PRODUCT USED FOR UNKNOWN INDICATION
  10. COLACE [Concomitant]
     Indication: PRODUCT USED FOR UNKNOWN INDICATION
  11. SENOKOT /00142201/ [Concomitant]
  12. SYNTHROID [Concomitant]
     Indication: PRODUCT USED FOR UNKNOWN INDICATION
  13. EMO CORT [Concomitant]
     Indication: PRODUCT USED FOR UNKNOWN INDICATION
  14. CORTATE /00014602/ [Concomitant]
     Indication: PRODUCT USED FOR UNKNOWN INDICATION
  15. D-TABS [Concomitant]
     Indication: PRODUCT USED FOR UNKNOWN INDICATION
  16. ACTONEL [Concomitant]
     Indication: PRODUCT USED FOR UNKNOWN INDICATION

REACTIONS (4)
  - Cerebrovascular accident [Unknown]
  - Toxicity to various agents [Recovered/Resolved]
  - Pancytopenia [Recovered/Resolved]
  - Drug level increased [Recovered/Resolved]
